FAERS Safety Report 18301522 (Version 1)
Quarter: 2020Q3

REPORT INFORMATION
  Report Type: Spontaneous
  Country: US (occurrence: US)
  Receive Date: 20200923
  Receipt Date: 20200923
  Transmission Date: 20201103
  Serious: No
  Sender: FDA-Public Use
  Company Number: US-RECKITT BENCKISER HEALTHCARE INT LIMITED-RB-89521-2019

PATIENT
  Age: 70 Year
  Sex: Female

DRUGS (2)
  1. MUCINEX MAXIMUM STRENGTH [Suspect]
     Active Substance: GUAIFENESIN
     Indication: PNEUMONIA
     Dosage: TOOK ONCE A DAY OR SOMETIMES TWICE A DAY
     Route: 065
     Dates: start: 2019
  2. MUCINEX MAXIMUM STRENGTH [Suspect]
     Active Substance: GUAIFENESIN
     Indication: RESPIRATORY DISORDER

REACTIONS (2)
  - Therapeutic product effective for unapproved indication [Unknown]
  - Incorrect product administration duration [Unknown]
